FAERS Safety Report 13069861 (Version 4)
Quarter: 2017Q2

REPORT INFORMATION
  Report Type: Spontaneous
  Country: FR (occurrence: FR)
  Receive Date: 20161228
  Receipt Date: 20170508
  Transmission Date: 20170830
  Serious: Yes (Hospitalization)
  Sender: FDA-Public Use
  Company Number: FR-NOVOPROD-524712

PATIENT
  Age: 55 Year
  Sex: Male
  Weight: 99 kg

DRUGS (9)
  1. KARDEGIC [Suspect]
     Active Substance: ASPIRIN LYSINE
     Indication: MYOCARDIAL INFARCTION
     Dosage: 75 MG, QD
     Route: 048
     Dates: start: 201605
  2. BISOPROLOL [Suspect]
     Active Substance: BISOPROLOL
     Indication: PRODUCT USED FOR UNKNOWN INDICATION
     Dosage: 10 MG, QD (MORNING)
     Route: 048
     Dates: start: 2016
  3. VICTOZA [Suspect]
     Active Substance: LIRAGLUTIDE
     Indication: TYPE 2 DIABETES MELLITUS
     Dosage: 1.2 MG, QD (MORNING)
     Route: 065
     Dates: start: 2016, end: 201612
  4. BRILIQUE [Suspect]
     Active Substance: TICAGRELOR
     Indication: MYOCARDIAL INFARCTION
     Dosage: 90 MG, QD (EVENING)
     Route: 048
     Dates: start: 201605
  5. RAMIPRIL. [Suspect]
     Active Substance: RAMIPRIL
     Indication: HYPERTENSION
     Dosage: 2.5 MG, QD (MORNING)
     Route: 048
     Dates: start: 2016
  6. TRINITRINE [Suspect]
     Active Substance: NITROGLYCERIN
     Indication: PRODUCT USED FOR UNKNOWN INDICATION
     Dosage: 0.3 MG, PRN
     Route: 048
     Dates: start: 2016
  7. PRAVASTATIN. [Suspect]
     Active Substance: PRAVASTATIN
     Indication: PRODUCT USED FOR UNKNOWN INDICATION
     Dosage: 40 MG, QD (EVENING)
     Route: 048
     Dates: start: 2016, end: 201612
  8. METFORMINE [Suspect]
     Active Substance: METFORMIN HYDROCHLORIDE
     Indication: TYPE 2 DIABETES MELLITUS
     Dosage: 850 MG, BID (MORNING)
     Route: 048
     Dates: start: 2016
  9. OMEPRAZOLE. [Suspect]
     Active Substance: OMEPRAZOLE
     Indication: PRODUCT USED FOR UNKNOWN INDICATION
     Dosage: 1 IN EVENING
     Route: 048
     Dates: start: 2016

REACTIONS (2)
  - Hypertriglyceridaemia [Not Recovered/Not Resolved]
  - Hypercholesterolaemia [Unknown]

NARRATIVE: CASE EVENT DATE: 201606
